APPROVED DRUG PRODUCT: AKLIEF
Active Ingredient: TRIFAROTENE
Strength: 0.005%
Dosage Form/Route: CREAM;TOPICAL
Application: N211527 | Product #001
Applicant: GALDERMA LABORATORIES LP
Approved: Oct 4, 2019 | RLD: Yes | RS: Yes | Type: RX

PATENTS:
Patent 9084778 | Expires: May 30, 2033
Patent 9498465 | Expires: May 30, 2033
Patent 7807708 | Expires: Jul 19, 2031